FAERS Safety Report 5129347-0 (Version None)
Quarter: 2006Q4

REPORT INFORMATION
  Report Type: 
  Country: None (occurrence: None)
  Receive Date: 20061012
  Receipt Date: 20060929
  Transmission Date: 20070319
  Serious: Yes (Other)
  Sender: FDA-Public Use
  Company Number: 2006120342

PATIENT
  Age: 71 Year
  Sex: Female

DRUGS (6)
  1. LYRICA [Suspect]
     Indication: PAIN
     Dosage: 300 MG (150 MG, 2 IN 1 D); ORAL
     Route: 048
     Dates: start: 20050101
  2. SERTRALINE HCL [Concomitant]
  3. LORAZEPAM [Concomitant]
  4. SOMAZINA (CITICOLINE) [Concomitant]
  5. TRANSTEC TTS (BUPRENORPHINE) [Concomitant]
  6. ALL OTHER NON-THERAPEUTIC PRODUCTS [Concomitant]

REACTIONS (10)
  - CLUMSINESS [None]
  - CONDITION AGGRAVATED [None]
  - DIZZINESS [None]
  - DRUG INEFFECTIVE [None]
  - GAIT DISTURBANCE [None]
  - ILL-DEFINED DISORDER [None]
  - SOMNOLENCE [None]
  - SPEECH DISORDER [None]
  - SPINAL COLUMN STENOSIS [None]
  - WEIGHT INCREASED [None]
